FAERS Safety Report 5691495-4 (Version None)
Quarter: 2008Q1

REPORT INFORMATION
  Report Type: 
  Country: None (occurrence: None)
  Receive Date: 20080331
  Receipt Date: 20080317
  Transmission Date: 20080703
  Serious: Yes (Other)
  Sender: FDA-Public Use
  Company Number: MC200800144

PATIENT

DRUGS (1)
  1. ANGIOMAX [Suspect]
     Indication: CORONARY ARTERY BYPASS
     Dosage: 0.75 MG/KG, SINGLE, IV BOLUS, 1.75 MG/KG, INTRAVENOUS
     Route: 040

REACTIONS (8)
  - ATRIAL FIBRILLATION [None]
  - CEREBROVASCULAR ACCIDENT [None]
  - HAEMORRHAGE [None]
  - LOW CARDIAC OUTPUT SYNDROME [None]
  - MECHANICAL VENTILATION COMPLICATION [None]
  - MEDIASTINITIS [None]
  - MYOCARDIAL INFARCTION [None]
  - RENAL FAILURE [None]
